FAERS Safety Report 13090367 (Version 1)
Quarter: 2017Q1

REPORT INFORMATION
  Report Type: Spontaneous
  Country: US (occurrence: US)
  Receive Date: 20170105
  Receipt Date: 20170105
  Transmission Date: 20170428
  Serious: No
  Sender: FDA-Public Use
  Company Number: US-ENDO PHARMACEUTICALS INC.-2016-001645

PATIENT
  Age: 57 Year
  Sex: Male
  Weight: 108.96 kg

DRUGS (1)
  1. TESTOSTERONE GEL [Suspect]
     Active Substance: TESTOSTERONE
     Indication: BLOOD TESTOSTERONE DECREASED
     Route: 061
     Dates: start: 20151107, end: 20151121

REACTIONS (10)
  - Bladder pain [Recovering/Resolving]
  - Application site rash [Recovering/Resolving]
  - Urinary retention [Recovering/Resolving]
  - Urinary incontinence [Recovering/Resolving]
  - Application site erythema [Recovering/Resolving]
  - Dysuria [Recovering/Resolving]
  - Pruritus [Recovering/Resolving]
  - Pollakiuria [Recovering/Resolving]
  - Eye pruritus [Recovering/Resolving]
  - Skin burning sensation [Recovering/Resolving]

NARRATIVE: CASE EVENT DATE: 20151121
